FAERS Safety Report 19494536 (Version 2)
Quarter: 2023Q1

REPORT INFORMATION
  Report Type: Spontaneous
  Country: DE (occurrence: DE)
  Receive Date: 20210705
  Receipt Date: 20230117
  Transmission Date: 20230417
  Serious: Yes (Hospitalization)
  Sender: FDA-Public Use
  Company Number: DE-ADRED-06527-01

PATIENT
  Age: 80 Year
  Sex: Female

DRUGS (15)
  1. ASPIRIN [Suspect]
     Active Substance: ASPIRIN
     Indication: Product used for unknown indication
     Dosage: 100 MG, (PAUSIERT SEIT 30032021, TABLETTEN )
     Route: 048
  2. IBUPROFEN [Suspect]
     Active Substance: IBUPROFEN
     Indication: Product used for unknown indication
     Dosage: 600 MG (SEIT 1D UMGESETZT AUF BEDARFSMEDIKATION BIS ZU 3 ST?CK PRO TAG VORHER AM ABEND EINE FESTMEDI
     Route: 048
  3. APIXABAN [Suspect]
     Active Substance: APIXABAN
     Indication: Product used for unknown indication
     Dosage: 2.5 MG, BID (1-0-1-0, TABLETTEN)
     Route: 048
  4. CARBIMAZOLE [Concomitant]
     Active Substance: CARBIMAZOLE
     Indication: Product used for unknown indication
     Dosage: 5 MG, QD ( 0.5-0-0-0, TABLETTEN)
     Route: 048
  5. PROPRANOLOL [Concomitant]
     Active Substance: PROPRANOLOL HYDROCHLORIDE
     Indication: Product used for unknown indication
     Dosage: 10 MG, TID (1-1-1-0, TABLETTEN)
     Route: 048
  6. DIMENHYDRINATE [Concomitant]
     Active Substance: DIMENHYDRINATE
     Indication: Product used for unknown indication
     Dosage: 50 MG (BEI BEDARF H?CHSTENS 3 IN 24H, TABLETTEN)
     Route: 048
  7. FUROSEMIDE [Concomitant]
     Active Substance: FUROSEMIDE
     Indication: Product used for unknown indication
     Dosage: 40 MG (BEI BEDARF, TABLETTEN)
     Route: 048
  8. CANDESARTAN [Concomitant]
     Active Substance: CANDESARTAN
     Indication: Product used for unknown indication
     Dosage: 8 MG, QD ( 0.5-0-0-0, TABLETTEN)
     Route: 048
  9. LOPERAMIDE [Concomitant]
     Active Substance: LOPERAMIDE
     Indication: Product used for unknown indication
     Dosage: 2 MG (BEI BEDARF H?CHSTENS 2 IN 24H, TABLETTEN)
     Route: 048
  10. PANTOPRAZOLE [Concomitant]
     Active Substance: PANTOPRAZOLE
     Indication: Product used for unknown indication
     Dosage: 40 MG, BID (1-0-1-0, TABLETTEN)
     Route: 048
  11. DIGITOXIN [Concomitant]
     Active Substance: DIGITOXIN
     Indication: Product used for unknown indication
     Dosage: 0.05 MG, QD (1-0-0-0, TABLETTEN)
     Route: 048
  12. LACTULOSE [Concomitant]
     Active Substance: LACTULOSE
     Indication: Product used for unknown indication
     Dosage: UNK (667 G/L, 10ML BEI BEDARF IN 24H, SAFT)
     Route: 048
  13. IVY EXTRACT [Concomitant]
     Active Substance: IVY EXTRACT
     Indication: Product used for unknown indication
     Dosage: UNK (35|5 MG/ML, BEI BEDARF, SAFT)
     Route: 048
  14. SPIRONOLACTONE [Concomitant]
     Active Substance: SPIRONOLACTONE
     Indication: Product used for unknown indication
     Dosage: 50 MG (PAUSIERT SEIT 1TAG, TABLETTEN)
     Route: 048
  15. ZOLPIDEM [Concomitant]
     Active Substance: ZOLPIDEM TARTRATE
     Indication: Product used for unknown indication
     Dosage: 10 MG (PAUSIERT SEIT 30032021, TABLETTEN)
     Route: 048

REACTIONS (3)
  - Fall [Unknown]
  - Nausea [Unknown]
  - Medication error [Unknown]
